FAERS Safety Report 8566809-8 (Version None)
Quarter: 2012Q3

REPORT INFORMATION
  Report Type: 
  Country: None (occurrence: None)
  Receive Date: 20120803
  Receipt Date: 20120730
  Transmission Date: 20120928
  Serious: Yes (Death, Other)
  Sender: FDA-Public Use
  Company Number: JP-BAYER-2012-076297

PATIENT
  Age: 60 Year
  Sex: Male

DRUGS (7)
  1. PLETAL [Suspect]
     Dosage: UNK
     Route: 048
     Dates: end: 20120301
  2. PLAVIX [Suspect]
     Dosage: UNK
     Route: 048
     Dates: start: 20120501, end: 20120501
  3. ASPIRIN [Suspect]
     Dosage: UNK
     Route: 048
     Dates: start: 20120501
  4. PLAVIX [Suspect]
     Dosage: UNK
     Route: 048
     Dates: start: 20120201, end: 20120301
  5. HEPARIN [Concomitant]
     Dosage: UNK
     Dates: start: 20120301
  6. ASPIRIN [Suspect]
     Dosage: UNK
     Route: 048
     Dates: start: 20120201, end: 20120301
  7. CRESTOR [Suspect]
     Dosage: UNK
     Route: 048
     Dates: end: 20120301

REACTIONS (4)
  - JAUNDICE [None]
  - DRUG-INDUCED LIVER INJURY [None]
  - ASTHENIA [None]
  - HEPATITIS FULMINANT [None]
